FAERS Safety Report 8335321-3 (Version None)
Quarter: 2012Q2

REPORT INFORMATION
  Report Type: 
  Country: None (occurrence: None)
  Receive Date: 20120503
  Receipt Date: 20120430
  Transmission Date: 20120825
  Serious: Yes (Life-Threatening, Hospitalization, Other)
  Sender: FDA-Public Use
  Company Number: US-MPIJNJ-2011-00952

PATIENT
  Sex: Male
  Weight: 66 kg

DRUGS (2)
  1. VELCADE [Suspect]
     Dosage: 1.4 MG, CYCLIC
     Route: 042
     Dates: start: 20101102, end: 20110308
  2. EVEROLIMUS [Suspect]
     Dosage: 5 MG, QD
     Route: 048
     Dates: start: 20101102, end: 20110308

REACTIONS (4)
  - DYSPNOEA [None]
  - CHEST PAIN [None]
  - ANAEMIA [None]
  - RENAL FAILURE [None]
